FAERS Safety Report 7727449-3 (Version None)
Quarter: 2011Q3

REPORT INFORMATION
  Report Type: 
  Country: None (occurrence: None)
  Receive Date: 20110902
  Receipt Date: 20110819
  Transmission Date: 20111222
  Serious: No
  Sender: FDA-Public Use
  Company Number: US-OPTIMER-20110015

PATIENT

DRUGS (7)
  1. DIFICID [Suspect]
     Indication: CLOSTRIDIUM DIFFICILE COLITIS
     Dosage: 200 MG, BID
     Route: 048
     Dates: start: 20110803, end: 20110820
  2. VANCOMYCIN [Concomitant]
     Dosage: 500 MG, QID
     Route: 048
     Dates: start: 20110501
  3. VANCOMYCIN [Concomitant]
     Indication: CLOSTRIDIUM TEST POSITIVE
     Dosage: 250 MG, QID
     Dates: start: 20110426
  4. FLAGYL [Concomitant]
     Indication: CLOSTRIDIUM TEST POSITIVE
     Dosage: UNK
     Dates: start: 20110301
  5. FLORASTOR [Concomitant]
     Indication: DIARRHOEA
     Dosage: 2 TABLETS BID
     Dates: start: 20110426
  6. FLAGYL [Concomitant]
     Dosage: 500 MG, TID
     Dates: start: 20110501
  7. FLAGYL [Concomitant]
     Dosage: 300 MG, TID
     Dates: start: 20110501

REACTIONS (3)
  - WEIGHT DECREASED [None]
  - DRUG INEFFECTIVE [None]
  - DIARRHOEA [None]
